FAERS Safety Report 4405015-5 (Version None)
Quarter: 2004Q3

REPORT INFORMATION
  Report Type: 
  Country: None (occurrence: None)
  Receive Date: 20040716
  Receipt Date: 20040707
  Transmission Date: 20050211
  Serious: Yes (Death)
  Sender: FDA-Public Use
  Company Number: 2004-07-0435

PATIENT
  Sex: Female

DRUGS (1)
  1. PEG-INTRON [Suspect]
     Indication: HEPATITIS
     Dosage: 96 MCG QWK SUBCUTANEOUS
     Route: 058
     Dates: start: 20040101

REACTIONS (1)
  - DEATH [None]
